FAERS Safety Report 5024118-8 (Version None)
Quarter: 2006Q2

REPORT INFORMATION
  Report Type: 
  Country: None (occurrence: None)
  Receive Date: 20060607
  Receipt Date: 20060518
  Transmission Date: 20061013
  Serious: Yes (Hospitalization, Other)
  Sender: FDA-Public Use
  Company Number: US200605003936

PATIENT
  Sex: Male

DRUGS (5)
  1. HUMALOG [Suspect]
     Indication: DIABETES MELLITUS
     Dosage: AS NEEDED
  2. HUMULIN U [Suspect]
     Indication: DIABETES MELLITUS
     Dosage: 8 U EACH MORNING
  3. HUMULIN N [Suspect]
     Indication: DIABETES MELLITUS
     Dates: start: 20040101, end: 20040101
  4. HUMULIN R [Suspect]
     Indication: DIABETES MELLITUS
     Dates: start: 20060301, end: 20060301
  5. LANTUS [Concomitant]

REACTIONS (11)
  - BLOOD GLUCOSE INCREASED [None]
  - CORONARY ARTERY OCCLUSION [None]
  - DIABETIC RETINOPATHY [None]
  - DRUG INEFFECTIVE [None]
  - EYE EXCISION [None]
  - MYOCARDIAL INFARCTION [None]
  - PAIN [None]
  - PERICARDIAL EFFUSION [None]
  - PLEURAL EFFUSION [None]
  - RENAL IMPAIRMENT [None]
  - RETINAL DETACHMENT [None]
